FAERS Safety Report 22350276 (Version 1)
Quarter: 2023Q2

REPORT INFORMATION
  Report Type: Spontaneous
  Country: NL (occurrence: NL)
  Receive Date: 20230522
  Receipt Date: 20230522
  Transmission Date: 20230722
  Serious: Yes (Life-Threatening)
  Sender: FDA-Public Use
  Company Number: None

PATIENT
  Sex: Male
  Weight: 89 kg

DRUGS (2)
  1. ENALAPRIL [Suspect]
     Active Substance: ENALAPRIL
     Indication: Hypertension
     Dosage: 10 MILLIGRAM DAILY; 1 DD 1 TABLET, ENALAPRIL TABLET 10MG / BRAND NAME NOT SPECIFIED,
     Route: 065
     Dates: start: 20230121, end: 20230123
  2. ATORVASTATIN [Concomitant]
     Active Substance: ATORVASTATIN
     Indication: Product used for unknown indication
     Dosage: ATORVASTATINE TABLET 20MG / BRAND NAME NOT SPECIFIED.

REACTIONS (1)
  - Angioedema [Recovered/Resolved]
